FAERS Safety Report 25267651 (Version 2)
Quarter: 2025Q3

REPORT INFORMATION
  Report Type: Spontaneous
  Country: GB (occurrence: GB)
  Receive Date: 20250505
  Receipt Date: 20250701
  Transmission Date: 20251021
  Serious: Yes (Hospitalization)
  Sender: MYLAN
  Company Number: GB-MYLANLABS-2024M1094555

PATIENT
  Sex: Male

DRUGS (3)
  1. CLOZARIL [Suspect]
     Active Substance: CLOZAPINE
     Indication: Schizophrenia
  2. CLOZARIL [Suspect]
     Active Substance: CLOZAPINE
  3. DIAZEPAM [Concomitant]
     Active Substance: DIAZEPAM
     Dosage: 40 MILLIGRAM, QD

REACTIONS (4)
  - Hospitalisation [Unknown]
  - Tooth infection [Unknown]
  - Tooth abscess [Unknown]
  - Differential white blood cell count abnormal [Unknown]
